FAERS Safety Report 17467729 (Version 1)
Quarter: 2020Q1

REPORT INFORMATION
  Report Type: Spontaneous
  Country: CN (occurrence: CN)
  Receive Date: 20200227
  Receipt Date: 20200227
  Transmission Date: 20200409
  Serious: Yes (Hospitalization)
  Sender: FDA-Public Use
  Company Number: CN-JNJFOC-20200235310

PATIENT
  Age: 41 Year
  Sex: Male
  Weight: 55 kg

DRUGS (1)
  1. RIVAROXABAN [Suspect]
     Active Substance: RIVAROXABAN
     Indication: DEEP VEIN THROMBOSIS
     Dosage: 10 MG, QD
     Route: 048
     Dates: start: 20200122, end: 20200213

REACTIONS (4)
  - Oedema peripheral [Unknown]
  - Incorrect dose administered [Unknown]
  - Gastrointestinal haemorrhage [Recovering/Resolving]
  - Scrotal swelling [Unknown]

NARRATIVE: CASE EVENT DATE: 20200122
